FAERS Safety Report 15730135 (Version 4)
Quarter: 2019Q2

REPORT INFORMATION
  Report Type: Spontaneous
  Country: US (occurrence: US)
  Receive Date: 20181217
  Receipt Date: 20190624
  Transmission Date: 20190711
  Serious: Yes (Other)
  Sender: FDA-Public Use
  Company Number: US-SA-2018SA336180

PATIENT
  Age: 54 Year
  Sex: Female
  Weight: 90 kg

DRUGS (17)
  1. DOCETAXEL. [Suspect]
     Active Substance: DOCETAXEL
     Dosage: 75 MG, Q3W
     Route: 042
     Dates: start: 20150331, end: 20150331
  2. COLACE [Concomitant]
     Active Substance: DOCUSATE SODIUM
  3. HYDROCHLOROTHIAZIDE. [Concomitant]
     Active Substance: HYDROCHLOROTHIAZIDE
  4. OXYCONTIN [Concomitant]
     Active Substance: OXYCODONE HYDROCHLORIDE
  5. DOCETAXEL. [Suspect]
     Active Substance: DOCETAXEL
     Indication: BREAST CANCER FEMALE
     Dosage: 75 MG, Q3W
     Route: 042
     Dates: start: 20141104, end: 20141104
  6. NEXIUM [Concomitant]
     Active Substance: ESOMEPRAZOLE MAGNESIUM
  7. HYDROCODONE [Concomitant]
     Active Substance: HYDROCODONE
  8. CARISOPRODOL. [Concomitant]
     Active Substance: CARISOPRODOL
  9. SOMA [Concomitant]
     Active Substance: CARISOPRODOL
  10. CARDIZEM [Concomitant]
     Active Substance: DILTIAZEM HYDROCHLORIDE
  11. HERCEPTIN [Concomitant]
     Active Substance: TRASTUZUMAB
     Dosage: UNK UNK, UNK
  12. XANAX [Concomitant]
     Active Substance: ALPRAZOLAM
  13. PROCHLORPERAZINE. [Concomitant]
     Active Substance: PROCHLORPERAZINE
  14. ONDANSETRON [Concomitant]
     Active Substance: ONDANSETRON
  15. PARAPLATIN [Concomitant]
     Active Substance: CARBOPLATIN
     Dosage: UNK UNK, UNK
  16. ESCITALOPRAM [Concomitant]
     Active Substance: ESCITALOPRAM OXALATE
  17. MECLIZINE HCL [Concomitant]
     Active Substance: MECLIZINE HYDROCHLORIDE

REACTIONS (1)
  - Alopecia [Recovering/Resolving]

NARRATIVE: CASE EVENT DATE: 20150512
